FAERS Safety Report 6270531-0 (Version None)
Quarter: 2009Q3

REPORT INFORMATION
  Report Type: 
  Country: None (occurrence: None)
  Receive Date: 20090716
  Receipt Date: 20090707
  Transmission Date: 20100115
  Serious: Yes (Hospitalization)
  Sender: FDA-Public Use
  Company Number: FR-PFIZER INC-2009236715

PATIENT
  Age: 23 Year

DRUGS (3)
  1. DALACINE [Suspect]
     Indication: SUBCUTANEOUS ABSCESS
     Dosage: UNK
     Dates: start: 20090522, end: 20090524
  2. RIFADIN [Suspect]
     Indication: SUBCUTANEOUS ABSCESS
     Dosage: UNK
     Dates: start: 20090522, end: 20090524
  3. PARACETAMOL [Suspect]
     Indication: BACK PAIN
     Dosage: 20 G, IN 5 DAYS
     Route: 048
     Dates: start: 20090525, end: 20090530

REACTIONS (1)
  - CYTOLYTIC HEPATITIS [None]
